FAERS Safety Report 5520218-4 (Version None)
Quarter: 2007Q4

REPORT INFORMATION
  Report Type: 
  Country: None (occurrence: None)
  Receive Date: 20071116
  Receipt Date: 20071106
  Transmission Date: 20080405
  Serious: Yes (Hospitalization)
  Sender: FDA-Public Use
  Company Number: ES-MERCK-0711ESP00008

PATIENT
  Age: 13 Year
  Sex: Male

DRUGS (1)
  1. SINGULAIR [Suspect]
     Indication: BRONCHITIS
     Route: 048
     Dates: start: 20010301, end: 20070301

REACTIONS (2)
  - BRONCHOSPASM [None]
  - DERMATITIS [None]
